FAERS Safety Report 5706906-5 (Version None)
Quarter: 2008Q2

REPORT INFORMATION
  Report Type: 
  Country: None (occurrence: None)
  Receive Date: 20080416
  Receipt Date: 20080407
  Transmission Date: 20081010
  Serious: Yes (Hospitalization)
  Sender: FDA-Public Use
  Company Number: DE-ELI_LILLY_AND_COMPANY-DE200804001664

PATIENT
  Sex: Male
  Weight: 190 kg

DRUGS (4)
  1. BYETTA [Suspect]
     Indication: TYPE 2 DIABETES MELLITUS
     Dates: start: 20080201
  2. METFORMIN HCL [Concomitant]
  3. DIOVAN [Concomitant]
  4. NEXIUM [Concomitant]

REACTIONS (4)
  - ASCITES [None]
  - CHOLESTASIS [None]
  - LIVER FUNCTION TEST ABNORMAL [None]
  - RENAL IMPAIRMENT [None]
